FAERS Safety Report 7388320 (Version 33)
Quarter: 2014Q1

REPORT INFORMATION
  Report Type: Spontaneous
  Country: US (occurrence: US)
  Receive Date: 20100514
  Receipt Date: 20140131
  Transmission Date: 20141002
  Serious: Yes (Hospitalization, Other)
  Sender: FDA-Public Use
  Company Number: PHEH2010US03418

PATIENT
  Sex: Female
  Weight: 71 kg

DRUGS (55)
  1. AREDIA [Suspect]
     Dosage: 90 MG, QMO
     Route: 042
  2. ZOMETA [Suspect]
     Indication: METASTASES TO BONE
     Dosage: 4 MG, QMO
     Route: 042
     Dates: start: 2002
  3. ZOMETA [Suspect]
     Indication: BREAST CANCER METASTATIC
     Dates: start: 200510
  4. DURAGESIC [Concomitant]
  5. CELEBREX [Concomitant]
  6. ADDERALL [Concomitant]
     Dosage: 15 MG,
  7. FLUOXETINE [Concomitant]
     Dosage: 20 MG,
  8. VITAMIN D [Concomitant]
  9. MAGNESIUM [Concomitant]
  10. BIOTIN [Concomitant]
  11. VITAMIN B12 [Concomitant]
  12. TAMOXIFEN [Concomitant]
  13. WARFARIN [Concomitant]
     Dosage: 2 MG,
  14. SIMVASTATIN [Concomitant]
     Dosage: 20 MG,
  15. PREVACID [Concomitant]
     Dosage: 30 MG,
  16. PROZAC [Concomitant]
  17. SULFASALAZINE [Concomitant]
  18. REGLAN [Concomitant]
  19. CYMBALTA [Concomitant]
     Dosage: 60 MG, BID
  20. PRILOSEC [Concomitant]
  21. XELODA [Concomitant]
  22. NEXIUM [Concomitant]
  23. FEMARA [Concomitant]
  24. CELEXA [Concomitant]
  25. DOXAZOSIN [Concomitant]
  26. CYTOXAN [Concomitant]
     Dates: start: 200201, end: 200206
  27. ADRIAMYCIN [Concomitant]
     Dates: start: 200201, end: 200206
  28. 5-FU [Concomitant]
  29. AUGMENTIN [Concomitant]
  30. TYLENOL [Concomitant]
  31. LEVOFLOXACIN [Concomitant]
  32. CLARINEX [Concomitant]
  33. FASLODEX [Concomitant]
     Dates: start: 20030219
  34. DESOXYN [Concomitant]
  35. VIOXX [Concomitant]
  36. AMBIEN [Concomitant]
  37. PROTONIX [Concomitant]
  38. VYTORIN [Concomitant]
     Dosage: 20 MG, QD
  39. WELLBUTRIN XL [Concomitant]
  40. EMLA [Concomitant]
  41. GABAPENTIN [Concomitant]
  42. DRYSOL [Concomitant]
  43. NASONEX [Concomitant]
  44. LAC-HYDRIN [Concomitant]
  45. NALTREXONE [Concomitant]
  46. COQ10 [Concomitant]
  47. GLUTAMINE [Concomitant]
  48. SELENIUM [Concomitant]
  49. TAGAMET [Concomitant]
  50. VITAMIN E [Concomitant]
  51. CALCIUM [Concomitant]
  52. DEPO-MEDROL [Concomitant]
  53. DARBEPOETIN ALFA [Concomitant]
     Dosage: 200 UG, UNK
     Route: 042
  54. DEMEROL [Concomitant]
     Dosage: 25 MG, UNK
     Route: 042
  55. NEUPOGEN [Concomitant]

REACTIONS (140)
  - Pulmonary embolism [Recovering/Resolving]
  - Osteonecrosis of jaw [Recovered/Resolved]
  - Pain [Unknown]
  - Loose tooth [Unknown]
  - Anxiety [Unknown]
  - Sensitivity of teeth [Unknown]
  - Exposed bone in jaw [Unknown]
  - Dental caries [Unknown]
  - Anhedonia [Unknown]
  - Anaemia [Unknown]
  - Hiatus hernia [Unknown]
  - Gastrooesophageal reflux disease [Unknown]
  - Osteoarthritis [Unknown]
  - Fractured sacrum [Recovering/Resolving]
  - Back pain [Unknown]
  - Splenic lesion [Unknown]
  - Bone lesion [Unknown]
  - Spondylolysis [Unknown]
  - Hepatic mass [Unknown]
  - Arteriosclerosis [Unknown]
  - Adnexa uteri mass [Unknown]
  - Sinusitis [Unknown]
  - Nasal congestion [Unknown]
  - Hepatic lesion [Unknown]
  - Nasal septum deviation [Unknown]
  - Spinal osteoarthritis [Unknown]
  - Scoliosis [Unknown]
  - Intervertebral disc protrusion [Unknown]
  - Spondylolisthesis [Not Recovered/Not Resolved]
  - Cervical spinal stenosis [Unknown]
  - Vertebral foraminal stenosis [Unknown]
  - Oesophagitis [Unknown]
  - Hyperlipidaemia [Unknown]
  - Hypercholesterolaemia [Unknown]
  - Hepatitis [Unknown]
  - Hepatic cyst [Unknown]
  - Neoplasm progression [Not Recovered/Not Resolved]
  - Malignant neoplasm progression [Unknown]
  - Atelectasis [Unknown]
  - Osteopenia [Unknown]
  - Dysphagia [Unknown]
  - Viral infection [Unknown]
  - Chest pain [Unknown]
  - Arthropathy [Unknown]
  - Synovial cyst [Recovering/Resolving]
  - Fluid retention [Unknown]
  - Rectal polyp [Unknown]
  - Diverticulum [Unknown]
  - Haemorrhoids [Unknown]
  - Haematochezia [Unknown]
  - Rectal haemorrhage [Unknown]
  - Osteochondrosis [Unknown]
  - Dysaesthesia [Unknown]
  - Benign ovarian tumour [Unknown]
  - Vaginal discharge [Unknown]
  - Pleural fibrosis [Unknown]
  - Keratitis [Unknown]
  - Neurodermatitis [Unknown]
  - Papilloma [Unknown]
  - Cholesteatoma [Unknown]
  - Deafness neurosensory [Unknown]
  - Actinic keratosis [Unknown]
  - Neuritis [Unknown]
  - Amnesia [Unknown]
  - Visual impairment [Unknown]
  - Vulvovaginitis [Unknown]
  - Deep vein thrombosis [Unknown]
  - Renal failure chronic [Unknown]
  - Osteoporosis [Unknown]
  - Colitis ulcerative [Unknown]
  - Leukopenia [Unknown]
  - Rotator cuff syndrome [Recovering/Resolving]
  - Hypertrophy [Unknown]
  - Pharyngitis [Unknown]
  - Cataract nuclear [Unknown]
  - Attention deficit/hyperactivity disorder [Recovering/Resolving]
  - Upper airway obstruction [Unknown]
  - Ecchymosis [Unknown]
  - Fibromyalgia [Unknown]
  - Tongue discolouration [Unknown]
  - Weight increased [Unknown]
  - Gastritis [Unknown]
  - Ear pain [Unknown]
  - Paronychia [Unknown]
  - Tinnitus [Unknown]
  - Phlebitis [Unknown]
  - Lymphoedema [Unknown]
  - Gastric polyps [Unknown]
  - Dyspepsia [Unknown]
  - Embolism venous [Unknown]
  - Neuropathy peripheral [Unknown]
  - Sciatica [Unknown]
  - Bone disorder [Unknown]
  - Blood glucose increased [Unknown]
  - Fibrous histiocytoma [Unknown]
  - Solar lentigo [Unknown]
  - Skin ulcer [Unknown]
  - Neoplasm skin [Unknown]
  - Oedema peripheral [Unknown]
  - Pain in extremity [Unknown]
  - Respiratory disorder [Unknown]
  - Pancytopenia [Unknown]
  - Exostosis [Unknown]
  - Foot fracture [Unknown]
  - Contusion [Unknown]
  - Tendonitis [Unknown]
  - Excoriation [Unknown]
  - Bone callus excessive [Unknown]
  - Osteosclerosis [Unknown]
  - Vascular calcification [Unknown]
  - Animal bite [Unknown]
  - Haemorrhage [Unknown]
  - Sinus tarsi syndrome [Unknown]
  - Arthritis [Unknown]
  - Road traffic accident [Unknown]
  - Limb discomfort [Unknown]
  - Rib fracture [Unknown]
  - Rib deformity [Recovered/Resolved]
  - Bone marrow failure [Unknown]
  - Hypoaesthesia oral [Unknown]
  - Hepatic steatosis [Unknown]
  - Cholelithiasis [Unknown]
  - Lacrimation increased [Unknown]
  - Injury [Unknown]
  - Arthralgia [Unknown]
  - Muscle spasms [Unknown]
  - Glucose tolerance impaired [Unknown]
  - Infectious mononucleosis [Unknown]
  - Musculoskeletal chest pain [Unknown]
  - Musculoskeletal pain [Unknown]
  - Tachycardia [Unknown]
  - Hip fracture [Unknown]
  - Urinary tract infection [Unknown]
  - Gastrointestinal haemorrhage [Unknown]
  - Dyslipidaemia [Unknown]
  - Femur fracture [Unknown]
  - Joint effusion [Unknown]
  - Lip swelling [Unknown]
  - Hypokalaemia [Unknown]
  - Gait disturbance [Unknown]
